FAERS Safety Report 9924310 (Version 2)
Quarter: 2014Q2

REPORT INFORMATION
  Report Type: Report from Study
  Country: US (occurrence: US)
  Receive Date: 20140226
  Receipt Date: 20140409
  Transmission Date: 20141212
  Serious: Yes (Other)
  Sender: FDA-Public Use
  Company Number: US-ROCHE-1354814

PATIENT
  Age: 39 Year
  Sex: Female
  Weight: 102.15 kg

DRUGS (48)
  1. OMALIZUMAB [Suspect]
     Indication: ASTHMA
     Dosage: 1ST TRIMESTER OF 3 RD PREGNANCY
     Route: 058
     Dates: start: 20110201
  2. OMALIZUMAB [Suspect]
     Route: 058
     Dates: start: 20120130
  3. OMALIZUMAB [Suspect]
     Dosage: 1ST TRIMESTER OF 3 RD PREGNANCY
     Route: 058
     Dates: start: 20120304
  4. OMALIZUMAB [Suspect]
     Dosage: 1ST TRIMESTER OF 3 RD PREGNANCY
     Route: 058
     Dates: start: 20120402
  5. OMALIZUMAB [Suspect]
     Dosage: 1ST TRIMESTER OF 3 RD PREGNANCY
     Route: 058
     Dates: start: 20120509
  6. OMALIZUMAB [Suspect]
     Dosage: 2ND TRIMESTER OF 3 RD PREGNANCY
     Route: 058
     Dates: start: 20120614
  7. OMALIZUMAB [Suspect]
     Dosage: 2ND TRIMESTER OF 3 RD PREGNANCY
     Route: 058
     Dates: start: 20120629
  8. OMALIZUMAB [Suspect]
     Dosage: 2ND TRIMESTER OF 3 RD PREGNANCY
     Route: 058
     Dates: start: 20120730
  9. OMALIZUMAB [Suspect]
     Dosage: 2ND TRIMESTER OF 3 RD PREGNANCY
     Route: 058
     Dates: start: 20120831
  10. OMALIZUMAB [Suspect]
     Dosage: 2ND TRIMESTER  OF 3 RD PREGNANCY
     Route: 058
     Dates: start: 20120702
  11. OMALIZUMAB [Suspect]
     Dosage: 2ND TRIMESTER OF 3 RD PREGNANCY
     Route: 058
     Dates: start: 20120803
  12. OMALIZUMAB [Suspect]
     Dosage: 2ND TRIMESTER OF 3 RD PREGNANCY
     Route: 058
     Dates: start: 20120831
  13. OMALIZUMAB [Suspect]
     Dosage: 3RD TRIMESTER OF 3 RD PREGNANCY
     Route: 058
     Dates: start: 20120928
  14. OMALIZUMAB [Suspect]
     Dosage: 3RD TRIMESTER OF 3 RD PREGNANCY
     Route: 058
     Dates: start: 20121030
  15. OMALIZUMAB [Suspect]
     Route: 058
     Dates: start: 20121203
  16. OMALIZUMAB [Suspect]
     Route: 058
     Dates: start: 20130103
  17. OMALIZUMAB [Suspect]
     Route: 058
     Dates: start: 20130130
  18. OMALIZUMAB [Suspect]
     Route: 058
     Dates: start: 20130227
  19. OMALIZUMAB [Suspect]
     Route: 058
     Dates: start: 20130326
  20. OMALIZUMAB [Suspect]
     Route: 058
     Dates: start: 20130429
  21. OMALIZUMAB [Suspect]
     Route: 058
     Dates: start: 20130530
  22. OMALIZUMAB [Suspect]
     Route: 058
     Dates: start: 20130701
  23. OMALIZUMAB [Suspect]
     Route: 058
     Dates: start: 20130806
  24. OMALIZUMAB [Suspect]
     Route: 058
     Dates: start: 20130909
  25. OMALIZUMAB [Suspect]
     Route: 058
     Dates: start: 20131003
  26. OMALIZUMAB [Suspect]
     Route: 058
     Dates: start: 20131028
  27. OMALIZUMAB [Suspect]
     Route: 058
     Dates: start: 20140102
  28. OMALIZUMAB [Suspect]
     Dosage: 23/SEP/2013 IS THE DATE OF OMALIZUMAB PRIOR TO ONSET OF THE EVENT.
     Route: 058
     Dates: start: 20130923
  29. ALVESCO [Concomitant]
     Indication: ASTHMA
  30. ASPIRIN [Concomitant]
     Dosage: FOR HISTORY OF PULMONARY EMBOLI
     Route: 065
  31. HYDROXYZINE [Concomitant]
     Indication: HYPERSENSITIVITY
  32. ALLEGRA [Concomitant]
     Indication: HYPERSENSITIVITY
  33. RED RICE YEAST [Concomitant]
     Dosage: FOR WELL BEING
     Route: 065
  34. COQ-10 [Concomitant]
     Dosage: FOR WELL BEING
     Route: 065
  35. ZOFRAN [Concomitant]
     Indication: NAUSEA
  36. CLARITIN [Concomitant]
     Indication: HYPERSENSITIVITY
  37. BENADRYL (UNITED STATES) [Concomitant]
     Indication: HYPERSENSITIVITY
  38. TYLENOL [Concomitant]
     Indication: PAIN
  39. ALBUTEROL [Concomitant]
     Indication: ASTHMA
     Dosage: INHALER
     Route: 065
  40. HEPARIN [Concomitant]
     Indication: PULMONARY EMBOLISM
     Route: 065
     Dates: start: 201210, end: 201211
  41. TORADOL [Concomitant]
     Indication: PROCEDURAL PAIN
  42. MORPHINE [Concomitant]
     Indication: PROCEDURAL PAIN
  43. DILAUDID [Concomitant]
     Indication: PROCEDURAL PAIN
  44. PERCOCET [Concomitant]
     Indication: PROCEDURAL PAIN
  45. NUBAIN [Concomitant]
     Indication: PROCEDURAL PAIN
  46. LOVENOX [Concomitant]
     Indication: PULMONARY EMBOLISM
     Route: 065
     Dates: end: 201210
  47. LOVENOX [Concomitant]
     Route: 065
     Dates: start: 201211
  48. PITOCIN [Concomitant]
     Indication: LABOUR INDUCTION
     Route: 065
     Dates: start: 20121124, end: 20121125

REACTIONS (2)
  - Blighted ovum [Recovered/Resolved]
  - Exposure during pregnancy [Unknown]
